FAERS Safety Report 5024996-2 (Version None)
Quarter: 2006Q2

REPORT INFORMATION
  Report Type: 
  Country: None (occurrence: None)
  Receive Date: 20060607
  Receipt Date: 20060531
  Transmission Date: 20061013
  Serious: Yes (Other)
  Sender: FDA-Public Use
  Company Number: 2006-05-2229

PATIENT

DRUGS (1)
  1. NASONEX [Suspect]
     Indication: POSTOPERATIVE CARE
     Dosage: TOPICAL
     Route: 061

REACTIONS (2)
  - ANAPHYLACTIC SHOCK [None]
  - CARDIOVASCULAR DISORDER [None]
